FAERS Safety Report 10692615 (Version 1)
Quarter: 2015Q1

REPORT INFORMATION
  Report Type: Spontaneous
  Country: SE (occurrence: SE)
  Receive Date: 20150106
  Receipt Date: 20150106
  Transmission Date: 20150720
  Serious: Yes (Life-Threatening, Hospitalization, Other)
  Sender: FDA-Public Use
  Company Number: SE-UCBSA-2014022577

PATIENT
  Age: 62 Year
  Sex: Male

DRUGS (4)
  1. LYRICA [Concomitant]
     Active Substance: PREGABALIN
     Indication: ANXIETY
  2. KEPPRA [Suspect]
     Active Substance: LEVETIRACETAM
     Indication: EPILEPSY
     Dosage: 500 MGX2, 500 MG 3+0+3
     Dates: start: 20110706, end: 201203
  3. LYRICA [Concomitant]
     Active Substance: PREGABALIN
     Indication: EPILEPSY
     Dosage: UNKNOWN
     Dates: start: 201105, end: 201107
  4. ERGENYL [Concomitant]
     Active Substance: VALPROIC ACID
     Indication: PRODUCT USED FOR UNKNOWN INDICATION
     Dosage: UNK
     Dates: end: 201203

REACTIONS (12)
  - Seizure [Recovered/Resolved]
  - Dementia [Recovered/Resolved with Sequelae]
  - Balance disorder [Recovered/Resolved]
  - Hyponatraemia [Not Recovered/Not Resolved]
  - Hallucination, olfactory [Recovered/Resolved]
  - Anxiety [Unknown]
  - Body temperature decreased [Recovered/Resolved with Sequelae]
  - Confusional state [Recovered/Resolved]
  - Agitation [Recovered/Resolved]
  - Muscular weakness [Recovered/Resolved with Sequelae]
  - Depressed level of consciousness [Recovered/Resolved with Sequelae]
  - Hallucination, visual [Recovered/Resolved]

NARRATIVE: CASE EVENT DATE: 2011
